FAERS Safety Report 6628658-7 (Version None)
Quarter: 2010Q1

REPORT INFORMATION
  Report Type: 
  Country: None (occurrence: None)
  Receive Date: 20100311
  Receipt Date: 20100302
  Transmission Date: 20100710
  Serious: Yes (Other)
  Sender: FDA-Public Use
  Company Number: US-PFIZER INC-2010027201

PATIENT
  Sex: Female

DRUGS (1)
  1. XALATAN [Suspect]
     Dosage: 3 DROPS A DAY

REACTIONS (3)
  - DIZZINESS [None]
  - DRUG HYPERSENSITIVITY [None]
  - NAUSEA [None]
